FAERS Safety Report 9954017 (Version 1)
Quarter: 2014Q1

REPORT INFORMATION
  Report Type: Spontaneous
  Country: US (occurrence: US)
  Receive Date: 20140304
  Receipt Date: 20140304
  Transmission Date: 20141002
  Serious: No
  Sender: FDA-Public Use
  Company Number: US-TARO-2013P1021010

PATIENT
  Age: 23 Year
  Sex: Male
  Weight: 86.18 kg

DRUGS (5)
  1. LAMOTRIGINE TABLETS 200 MG [Suspect]
     Indication: BIPOLAR DISORDER
     Route: 048
     Dates: start: 20130907, end: 201310
  2. LEXAPRO [Concomitant]
  3. VYVANSE [Concomitant]
  4. VYVANSE [Concomitant]
  5. DORYX [Concomitant]

REACTIONS (4)
  - Drug ineffective [Recovered/Resolved]
  - Restlessness [Recovered/Resolved]
  - Mania [Recovered/Resolved]
  - Product substitution issue [Recovered/Resolved]
